FAERS Safety Report 7226591-3 (Version None)
Quarter: 2011Q1

REPORT INFORMATION
  Report Type: 
  Country: None (occurrence: None)
  Receive Date: 20110107
  Receipt Date: 20110107
  Transmission Date: 20110831
  Serious: Yes (Hospitalization)
  Sender: FDA-Public Use
  Company Number: None

PATIENT
  Age: 84 Year
  Sex: Male
  Weight: 80 kg

DRUGS (2)
  1. CLOPIDOGREL [Suspect]
     Indication: CORONARY ARTERIAL STENT INSERTION
     Dosage: 75 MG EVERY DAY PO
     Route: 048
     Dates: start: 20090527, end: 20100916
  2. ASPIRIN [Suspect]
     Indication: VASCULAR OPERATION
     Dosage: 81 MG EVERY DAY PO
     Route: 048
     Dates: end: 20101103

REACTIONS (8)
  - HYPOPERFUSION [None]
  - LACTIC ACIDOSIS [None]
  - SMALL INTESTINAL HAEMORRHAGE [None]
  - HYPOTENSION [None]
  - HYPOVOLAEMIA [None]
  - ANAEMIA [None]
  - RENAL FAILURE ACUTE [None]
  - EROSIVE DUODENITIS [None]
